FAERS Safety Report 24117135 (Version 1)
Quarter: 2024Q3

REPORT INFORMATION
  Report Type: Spontaneous
  Country: CN (occurrence: CN)
  Receive Date: 20240722
  Receipt Date: 20240722
  Transmission Date: 20241016
  Serious: Yes (Hospitalization)
  Sender: OCTAPHARMA
  Company Number: CN-OCTA-ALB11124

PATIENT
  Sex: Male
  Weight: 70 kg

DRUGS (3)
  1. ALBUMIN HUMAN [Suspect]
     Active Substance: ALBUMIN HUMAN
     Indication: Hypoproteinaemia
     Dosage: MASKED
     Route: 041
     Dates: start: 20240626, end: 20240629
  2. CEFTRIAXONE SODIUM [Suspect]
     Active Substance: CEFTRIAXONE SODIUM
     Indication: Anti-infective therapy
     Route: 041
     Dates: start: 20240625, end: 20240702
  3. KETOROLAC TROMETHAMINE [Concomitant]
     Active Substance: KETOROLAC TROMETHAMINE
     Indication: Product used for unknown indication
     Route: 041
     Dates: start: 20240625, end: 20240702

REACTIONS (4)
  - Dermatitis allergic [Recovering/Resolving]
  - Hypoaesthesia [Unknown]
  - Sensory loss [Unknown]
  - Hypokinesia [Unknown]

NARRATIVE: CASE EVENT DATE: 20240630
